FAERS Safety Report 16119692 (Version 1)
Quarter: 2019Q1

REPORT INFORMATION
  Report Type: Report from Study
  Country: FR (occurrence: FR)
  Receive Date: 20190326
  Receipt Date: 20190326
  Transmission Date: 20190418
  Serious: Yes (Hospitalization)
  Sender: FDA-Public Use
  Company Number: FR-PFIZER INC-2019127759

PATIENT
  Age: 72 Year
  Sex: Male

DRUGS (3)
  1. CISPLATIN. [Suspect]
     Active Substance: CISPLATIN
     Indication: BLADDER CANCER
     Dosage: 120 MG, 1X/DAY
     Dates: start: 20190221
  2. MSB0010718C [Suspect]
     Active Substance: AVELUMAB
     Indication: BLADDER CANCER
     Dosage: 640 MG, 1X/DAY
     Dates: start: 20190221
  3. GEMCITABINE HYDROCHLORIDE. [Suspect]
     Active Substance: GEMCITABINE HYDROCHLORIDE
     Indication: BLADDER CANCER
     Dosage: 1640 MG, 1X/DAY
     Dates: start: 20190221

REACTIONS (3)
  - Asthenia [Recovered/Resolved]
  - Bradycardia [Recovered/Resolved]
  - Nausea [Recovered/Resolved]

NARRATIVE: CASE EVENT DATE: 20190224
